FAERS Safety Report 9683538 (Version 5)
Quarter: 2017Q4

REPORT INFORMATION
  Report Type: Report from Study
  Country: JP (occurrence: JP)
  Receive Date: 20131112
  Receipt Date: 20171219
  Transmission Date: 20180321
  Serious: Yes (Death, Other)
  Sender: FDA-Public Use
  Company Number: JP-GILEAD-2013-0087460

PATIENT
  Age: 57 Year
  Sex: Female
  Weight: 39 kg

DRUGS (10)
  1. WARFARIN [Concomitant]
     Active Substance: WARFARIN
     Dosage: UNK
     Route: 048
     Dates: end: 20160517
  2. BERASUS LA [Concomitant]
     Indication: PULMONARY HYPERTENSION
     Dosage: UNK
     Dates: end: 20160517
  3. VASOLAN                            /00014302/ [Concomitant]
     Active Substance: VERAPAMIL HYDROCHLORIDE
  4. TRACLEER [Concomitant]
     Active Substance: BOSENTAN
     Route: 048
  5. ALDACTONE A [Concomitant]
     Active Substance: SPIRONOLACTONE
     Dosage: UNK
     Route: 048
     Dates: start: 20110209, end: 20160517
  6. AMBRISENTAN [Suspect]
     Active Substance: AMBRISENTAN
     Indication: PULMONARY HYPERTENSION
     Dosage: 5 MG, QD
     Route: 048
     Dates: start: 20101129, end: 20160517
  7. AMBRISENTAN [Suspect]
     Active Substance: AMBRISENTAN
     Indication: PULMONARY HYPERTENSION
  8. REVATIO [Concomitant]
     Active Substance: SILDENAFIL CITRATE
     Indication: PULMONARY HYPERTENSION
     Dosage: UNK
     Route: 048
     Dates: end: 20160517
  9. FUROSEMIDE. [Concomitant]
     Active Substance: FUROSEMIDE
     Dosage: UNK
     Route: 048
     Dates: start: 20110209, end: 20160517
  10. BERAPROST NA [Concomitant]
     Active Substance: BERAPROST SODIUM
     Dosage: UNK
     Route: 048

REACTIONS (7)
  - Fluid retention [Recovered/Resolved]
  - Anaemia [Recovered/Resolved]
  - Anaemia [Not Recovered/Not Resolved]
  - Disease progression [Fatal]
  - Cardiac failure [Recovered/Resolved]
  - Renal impairment [Not Recovered/Not Resolved]
  - Takayasu^s arteritis [Fatal]

NARRATIVE: CASE EVENT DATE: 20110209
